FAERS Safety Report 4727654-4 (Version None)
Quarter: 2005Q3

REPORT INFORMATION
  Report Type: 
  Country: None (occurrence: None)
  Receive Date: 20050728
  Receipt Date: 20050728
  Transmission Date: 20060218
  Serious: Yes (Hospitalization, Other)
  Sender: FDA-Public Use
  Company Number: None

PATIENT
  Sex: Female
  Weight: 49.5 kg

DRUGS (3)
  1. PACLITAXEL [Suspect]
     Indication: LARYNGEAL CANCER
     Dosage: SEE IMAGE
     Route: 042
     Dates: start: 20040422, end: 20040707
  2. PACLITAXEL [Suspect]
     Indication: LARYNGEAL CANCER
     Dosage: SEE IMAGE
     Route: 042
     Dates: start: 20040604
  3. RADIATION [Suspect]
     Dosage: SEE IMAGE
     Dates: start: 20040604

REACTIONS (7)
  - BETA HAEMOLYTIC STREPTOCOCCAL INFECTION [None]
  - CULTURE URINE POSITIVE [None]
  - HYPOXIA [None]
  - NEUTROPHIL COUNT DECREASED [None]
  - PNEUMONIA [None]
  - PYREXIA [None]
  - WHITE BLOOD CELL COUNT DECREASED [None]
